FAERS Safety Report 21854909 (Version 1)
Quarter: 2023Q1

REPORT INFORMATION
  Report Type: Report from Study
  Country: US (occurrence: US)
  Receive Date: 20230112
  Receipt Date: 20230112
  Transmission Date: 20230418
  Serious: No
  Sender: FDA-Public Use
  Company Number: US-ABBVIE-4249816

PATIENT
  Age: 53 Year
  Sex: Male

DRUGS (2)
  1. SKYRIZI [Suspect]
     Active Substance: RISANKIZUMAB-RZAA
     Indication: Psoriasis
     Route: 058
     Dates: start: 20221016, end: 20221016
  2. SKYRIZI [Suspect]
     Active Substance: RISANKIZUMAB-RZAA
     Indication: Psoriasis
     Dosage: 2ND DOSE
     Route: 058
     Dates: start: 20221214

REACTIONS (3)
  - Feeling cold [Unknown]
  - Feeling hot [Unknown]
  - Toothache [Recovering/Resolving]

NARRATIVE: CASE EVENT DATE: 20221201
